FAERS Safety Report 17528199 (Version 3)
Quarter: 2020Q2

REPORT INFORMATION
  Report Type: Spontaneous
  Country: PT (occurrence: PT)
  Receive Date: 20200311
  Receipt Date: 20200408
  Transmission Date: 20200713
  Serious: Yes (Hospitalization, Other)
  Sender: FDA-Public Use
  Company Number: PT-ALEXION PHARMACEUTICALS INC.-A202003001

PATIENT
  Age: 24 Year
  Sex: Female
  Weight: 65 kg

DRUGS (1)
  1. SOLIRIS [Suspect]
     Active Substance: ECULIZUMAB
     Indication: ATYPICAL HAEMOLYTIC URAEMIC SYNDROME
     Dosage: UNK, SINGLE DOSE
     Route: 065
     Dates: start: 20200213, end: 20200213

REACTIONS (5)
  - Drug ineffective [Unknown]
  - Renal tubular necrosis [Unknown]
  - Hypertension [Unknown]
  - Disease complication [Unknown]
  - Thrombotic microangiopathy [Unknown]
